FAERS Safety Report 5628739-0 (Version None)
Quarter: 2008Q1

REPORT INFORMATION
  Report Type: 
  Country: None (occurrence: None)
  Receive Date: 20080215
  Receipt Date: 20080215
  Transmission Date: 20080703
  Serious: Yes (Other)
  Sender: FDA-Public Use
  Company Number: None

PATIENT
  Age: 52 Year
  Sex: Male
  Weight: 98.8842 kg

DRUGS (1)
  1. CHANTIX [Suspect]
     Dosage: 1 MG BID

REACTIONS (1)
  - SUICIDAL IDEATION [None]
